FAERS Safety Report 10086109 (Version 2)
Quarter: 2014Q2

REPORT INFORMATION
  Report Type: Spontaneous
  Country: IT (occurrence: IT)
  Receive Date: 20140418
  Receipt Date: 20140429
  Transmission Date: 20141212
  Serious: Yes (Death)
  Sender: FDA-Public Use
  Company Number: IT-TEVA-475814ISR

PATIENT
  Age: 69 Year
  Sex: Female
  Weight: 45 kg

DRUGS (4)
  1. CARBOPLATINO TEVA [Suspect]
     Indication: OVARIAN CANCER METASTATIC
     Dosage: 300 MILLIGRAM DAILY;
     Route: 042
     Dates: start: 20140411, end: 20140411
  2. ANZATAX [Suspect]
     Indication: OVARIAN CANCER METASTATIC
     Dosage: 245 MILLIGRAM DAILY;
     Route: 042
     Dates: start: 20140411, end: 20140411
  3. CLORFENAMINA MALEATO [Concomitant]
     Indication: PREMEDICATION
     Dosage: 10 MILLIGRAM DAILY;
     Route: 030
     Dates: start: 20140411, end: 20140411
  4. IDROCORTISONE EMISUCCINATO [Concomitant]
     Indication: PREMEDICATION
     Dosage: 1 GRAM DAILY;
     Route: 042
     Dates: start: 20140411, end: 20140411

REACTIONS (2)
  - Malaise [Fatal]
  - Respiratory failure [Fatal]
